FAERS Safety Report 4344764-4 (Version None)
Quarter: 2004Q2

REPORT INFORMATION
  Report Type: 
  Country: None (occurrence: None)
  Receive Date: 20040423
  Receipt Date: 20040122
  Transmission Date: 20050107
  Serious: Yes (Disabling)
  Sender: FDA-Public Use
  Company Number: PHBS2004JP01162

PATIENT
  Age: 74 Year
  Sex: Male

DRUGS (5)
  1. PARLODEL [Suspect]
     Indication: PARKINSON'S DISEASE
     Dosage: 12 DF, UNK
     Route: 048
     Dates: start: 19970101
  2. LOXONIN [Concomitant]
     Indication: HEADACHE
     Dosage: ^SINGLE USE (1 SUM)^
     Route: 048
     Dates: start: 19970101, end: 20031231
  3. DOPASTON [Concomitant]
     Indication: PARKINSON'S DISEASE
     Dosage: 4 DF, UNK
     Route: 048
     Dates: start: 19970101
  4. TIAPRIDE HYDROCHLORIDE [Concomitant]
     Dosage: 1 DF, UNK
     Route: 048
     Dates: start: 19970101
  5. AMLODIN [Concomitant]
     Indication: HYPERTENSION
     Dosage: 1 DF, UNK
     Route: 048
     Dates: start: 19970101

REACTIONS (3)
  - COUGH [None]
  - DYSPNOEA EXERTIONAL [None]
  - INTERSTITIAL LUNG DISEASE [None]
